FAERS Safety Report 5800302-8 (Version None)
Quarter: 2008Q3

REPORT INFORMATION
  Report Type: 
  Country: None (occurrence: None)
  Receive Date: 20080703
  Receipt Date: 20080626
  Transmission Date: 20090109
  Serious: Yes (Other)
  Sender: FDA-Public Use
  Company Number: US-AMGEN-QUU290654

PATIENT
  Sex: Female

DRUGS (1)
  1. KINERET [Suspect]
     Indication: DRUG USE FOR UNKNOWN INDICATION
     Route: 058
     Dates: start: 20070921

REACTIONS (5)
  - PAIN [None]
  - POLYMYOSITIS [None]
  - PRURITUS [None]
  - RASH ERYTHEMATOUS [None]
  - SCLERODERMA [None]
